FAERS Safety Report 5472494-4 (Version None)
Quarter: 2007Q3

REPORT INFORMATION
  Report Type: 
  Country: None (occurrence: None)
  Receive Date: 20070927
  Receipt Date: 20070911
  Transmission Date: 20080115
  Serious: Yes (Hospitalization)
  Sender: FDA-Public Use
  Company Number: 006#3#2007-00060

PATIENT
  Age: 86 Year
  Sex: Female

DRUGS (7)
  1. CORDIPATCH-10 (GLYCERYL TRINITRATE) [Suspect]
     Dosage: 10 MG (10MG 1 IN 1 DAY(S))
     Route: 062
  2. PERINDOPRIL ERBUMINE [Concomitant]
  3. DURAGESIC-100 [Concomitant]
  4. DIAMICRON (GLICLAZIDE) [Concomitant]
  5. SINTROM [Concomitant]
  6. DEROXAT (PAROXETINE HYDROCHLORIDE) [Concomitant]
  7. OMEPRAZOLE [Concomitant]

REACTIONS (7)
  - ANOREXIA [None]
  - BEDRIDDEN [None]
  - DIABETES MELLITUS INADEQUATE CONTROL [None]
  - GENERAL PHYSICAL HEALTH DETERIORATION [None]
  - INTERNATIONAL NORMALISED RATIO INCREASED [None]
  - OVERDOSE [None]
  - SOMNOLENCE [None]
